FAERS Safety Report 15584772 (Version 1)
Quarter: 2018Q4

REPORT INFORMATION
  Report Type: Spontaneous
  Country: US (occurrence: US)
  Receive Date: 20181105
  Receipt Date: 20181105
  Transmission Date: 20190205
  Serious: No
  Sender: FDA-Public Use
  Company Number: None

PATIENT
  Age: 69 Year
  Sex: Female
  Weight: 89.55 kg

DRUGS (3)
  1. KISQALI [Suspect]
     Active Substance: RIBOCICLIB
     Indication: BREAST CANCER
     Route: 048
     Dates: start: 20180622
  2. LETROZOLE. [Concomitant]
     Active Substance: LETROZOLE
  3. ATIVAN [Concomitant]
     Active Substance: LORAZEPAM

REACTIONS (3)
  - Rash [None]
  - Jaundice [None]
  - Liver function test increased [None]
